FAERS Safety Report 19702129 (Version 3)
Quarter: 2022Q2

REPORT INFORMATION
  Report Type: Report from Study
  Country: US (occurrence: US)
  Receive Date: 20210813
  Receipt Date: 20220424
  Transmission Date: 20220721
  Serious: Yes (Hospitalization)
  Sender: FDA-Public Use
  Company Number: US-REGENERON PHARMACEUTICALS, INC.-2021-75508

PATIENT
  Age: 55 Year
  Sex: Female

DRUGS (9)
  1. CEMIPLIMAB [Suspect]
     Active Substance: CEMIPLIMAB
     Indication: Malignant melanoma
     Dosage: 350 MG, Q3W
     Route: 042
     Dates: start: 20210319, end: 20210701
  2. CEMIPLIMAB [Suspect]
     Active Substance: CEMIPLIMAB
     Dosage: 350 MG, Q3W
     Route: 042
     Dates: start: 20210819
  3. FIANLIMAB [Suspect]
     Active Substance: FIANLIMAB
     Indication: Malignant melanoma
     Dosage: 1600 MG, Q3W
     Route: 042
     Dates: start: 20210319, end: 20210701
  4. FIANLIMAB [Suspect]
     Active Substance: FIANLIMAB
     Dosage: 1600 MG, Q3W
     Route: 042
     Dates: start: 20210819
  5. LORATADINE [Concomitant]
     Active Substance: LORATADINE
     Indication: Rhinitis allergic
     Dosage: 10 MG, QD
     Route: 048
     Dates: start: 2017
  6. NAPHAZOLINE [Concomitant]
     Active Substance: NAPHAZOLINE\NAPHAZOLINE HYDROCHLORIDE
     Indication: Pruritus
     Dosage: 1-2 DROP, PRN
     Route: 047
     Dates: start: 20210410
  7. NAPROXEN [Concomitant]
     Active Substance: NAPROXEN
     Indication: Myalgia
     Dosage: 220 MG, AS NECESSARY (PRN)
     Route: 048
     Dates: start: 20210620
  8. ONDANSETRON [Concomitant]
     Active Substance: ONDANSETRON
     Indication: Nausea
     Dosage: 4 MG, AS NECESSARY (PRN)
     Route: 048
     Dates: start: 20210721, end: 20210723
  9. TRIAMCINOLONE ACETONIDE [Concomitant]
     Active Substance: TRIAMCINOLONE ACETONIDE
     Indication: Rash maculo-papular
     Dosage: 0.1 %, AS NECESSARY (PRN)
     Route: 061
     Dates: start: 202106

REACTIONS (2)
  - Adrenal insufficiency [Recovered/Resolved]
  - Cardiac failure [Recovered/Resolved]

NARRATIVE: CASE EVENT DATE: 20210722
